FAERS Safety Report 5069294-6 (Version None)
Quarter: 2006Q3

REPORT INFORMATION
  Report Type: 
  Country: None (occurrence: None)
  Receive Date: 20060731
  Receipt Date: 20060720
  Transmission Date: 20061208
  Serious: Yes (Other)
  Sender: FDA-Public Use
  Company Number: 2006090316

PATIENT
  Age: 60 Year
  Sex: Female

DRUGS (3)
  1. LIPITOR [Suspect]
     Indication: BLOOD CHOLESTEROL INCREASED
     Dosage: 20 MG (20 MG, 1 IN 1 D)
     Dates: start: 20030101, end: 20050101
  2. LIPITOR [Suspect]
     Indication: BLOOD CHOLESTEROL INCREASED
     Dosage: 20 MG (20 MG, 1 IN 1 D)
     Dates: start: 20030101, end: 20050101
  3. ACETYLSALICYLIC ACID SRT [Concomitant]

REACTIONS (12)
  - ARTHRALGIA [None]
  - BLOOD CHOLESTEROL INCREASED [None]
  - BURNING SENSATION [None]
  - CONSTIPATION [None]
  - CONTUSION [None]
  - DYSAESTHESIA [None]
  - ERYTHEMA [None]
  - INFLAMMATION [None]
  - MUSCLE STRAIN [None]
  - OILY SKIN [None]
  - SKIN DISCOLOURATION [None]
  - SKIN DISORDER [None]
